FAERS Safety Report 4362246-0 (Version None)
Quarter: 2004Q2

REPORT INFORMATION
  Report Type: 
  Country: None (occurrence: None)
  Receive Date: 20040517
  Receipt Date: 20040507
  Transmission Date: 20050107
  Serious: Yes (Hospitalization)
  Sender: FDA-Public Use
  Company Number: US-JNJFOC-20040501864

PATIENT
  Age: 49 Year
  Sex: Female
  Weight: 68.9467 kg

DRUGS (9)
  1. INFLIXIMAB (INFLIXIMAB, RECOMBINANT) LYOPHILIZED POWDER [Suspect]
     Indication: RHEUMATOID ARTHRITIS
     Dosage: 3 VIALS
     Dates: start: 20021022
  2. METHOTREXATE [Concomitant]
  3. FOLIC ACID [Concomitant]
  4. ALLEGRA [Concomitant]
  5. TRAZODONE HCL [Concomitant]
  6. MULTIVITAMIN (MULTIVITAMINS) [Concomitant]
  7. SELENIUM (SELENIUM) [Concomitant]
  8. CALCIUM (CALCIUM) [Concomitant]
  9. VITAMIN E [Concomitant]

REACTIONS (4)
  - LUNG NEOPLASM [None]
  - PNEUMOTHORAX [None]
  - POST PROCEDURAL COMPLICATION [None]
  - RHEUMATOID LUNG [None]
